FAERS Safety Report 15323019 (Version 2)
Quarter: 2022Q1

REPORT INFORMATION
  Report Type: Report from Study
  Country: GB (occurrence: GB)
  Receive Date: 20180827
  Receipt Date: 20220224
  Transmission Date: 20220423
  Serious: Yes (Other)
  Sender: FDA-Public Use
  Company Number: GB-002147023-PHHY2014GB130758

PATIENT

DRUGS (5)
  1. RUXOLITINIB [Suspect]
     Active Substance: RUXOLITINIB
     Indication: Myelofibrosis
     Dosage: 20 MG, QD
     Route: 048
     Dates: start: 20140614
  2. HYDROXYUREA [Suspect]
     Active Substance: HYDROXYUREA
     Indication: Myelofibrosis
     Dosage: 1 G, OVER WEEKEND
     Route: 065
  3. HYDROXYUREA [Suspect]
     Active Substance: HYDROXYUREA
     Indication: Platelet count increased
     Dosage: 500 MG, MONDAY TO FRIDAY
     Route: 065
  4. METHOTREXATE [Concomitant]
     Active Substance: METHOTREXATE
     Indication: Rheumatoid arthritis
     Dosage: 60 MG, UNK
     Route: 065
     Dates: start: 19980609
  5. EPO [ERYTHROPOIETIN] [Concomitant]
     Indication: Product used for unknown indication
     Dosage: 3000 U (1 DF=3000 U)
     Route: 065
     Dates: start: 20140820

REACTIONS (7)
  - Anaemia [Recovered/Resolved]
  - Anaemia [Recovered/Resolved]
  - Intentional product use issue [Unknown]
  - Mouth ulceration [Recovered/Resolved]
  - Neutrophil count increased [Unknown]
  - Post herpetic neuralgia [Unknown]
  - White blood cell count increased [Unknown]

NARRATIVE: CASE EVENT DATE: 20140717
